FAERS Safety Report 9239885 (Version 1)
Quarter: 2013Q2

REPORT INFORMATION
  Report Type: Report from Study
  Country: US (occurrence: US)
  Receive Date: 20130418
  Receipt Date: 20130418
  Transmission Date: 20140414
  Serious: Yes (Death, Hospitalization, Other)
  Sender: FDA-Public Use
  Company Number: US-GENZYME-CLOF-1002589

PATIENT
  Age: 83 Year
  Sex: Male
  Weight: 82.9 kg

DRUGS (1)
  1. CLOLAR [Suspect]
     Indication: ACUTE MYELOID LEUKAEMIA
     Dosage: 59 MG, QD X5 DAYS
     Route: 042
     Dates: start: 20130313, end: 20130317

REACTIONS (6)
  - Acute myeloid leukaemia [Fatal]
  - Renal failure acute [Fatal]
  - Pancytopenia [Unknown]
  - Febrile neutropenia [Unknown]
  - H1N1 influenza [Unknown]
  - Sepsis [Unknown]
